FAERS Safety Report 9977624 (Version 1)
Quarter: 2014Q1

REPORT INFORMATION
  Report Type: Report from Study
  Country: US (occurrence: US)
  Receive Date: 20140306
  Receipt Date: 20140306
  Transmission Date: 20141002
  Serious: No
  Sender: FDA-Public Use
  Company Number: US-ABBVIE-13P-163-1162803-00

PATIENT
  Sex: Female

DRUGS (12)
  1. HUMIRA [Suspect]
     Indication: CROHN^S DISEASE
     Dates: start: 20130729
  2. SERTRALINE [Concomitant]
     Indication: DEPRESSION
     Dosage: 100 MG DAILY
  3. HYDROXYZINE HCL [Concomitant]
     Indication: ANXIETY
     Dosage: 1-2 TABS AS NEEDED
  4. LISINOPRIL/HCTZ [Concomitant]
     Indication: HYPERTENSION
     Dosage: 20/25 MG DAILY
  5. TRAMADOL HCL [Concomitant]
     Indication: PAIN
     Dosage: 1-2 TABS
  6. VITAMIN D3 [Concomitant]
     Indication: VITAMIN D DECREASED
     Dosage: 2000 UNITS DAILY
  7. METFORMIN [Concomitant]
     Indication: DIABETES MELLITUS
     Dosage: AT NIGHT
  8. SIMVASTATIN [Concomitant]
     Indication: BLOOD CHOLESTEROL INCREASED
     Dosage: AT NIGHT
  9. CALCIUM [Concomitant]
     Indication: MINERAL SUPPLEMENTATION
  10. OMEPRAZOLE OTC [Concomitant]
     Indication: GASTROOESOPHAGEAL REFLUX DISEASE
     Dosage: DAILY
  11. B12 INJECTIONS [Concomitant]
     Indication: VITAMIN SUPPLEMENTATION
     Dosage: WEEKLY
  12. LEVOTHYROXINE [Concomitant]
     Indication: PRODUCT USED FOR UNKNOWN INDICATION
     Dosage: 112 MCG DAILY, DECREASED FROM 125 MCG DAILY

REACTIONS (1)
  - Blood thyroid stimulating hormone decreased [Unknown]
